FAERS Safety Report 16760282 (Version 1)
Quarter: 2019Q3

REPORT INFORMATION
  Report Type: Spontaneous
  Country: US (occurrence: US)
  Receive Date: 20190830
  Receipt Date: 20190830
  Transmission Date: 20191005
  Serious: No
  Sender: FDA-Public Use
  Company Number: US-PRINSTON PHARMACEUTICAL INC.-2019PRN00542

PATIENT
  Age: 84 Year
  Sex: Male

DRUGS (2)
  1. DULOXETINE. [Suspect]
     Active Substance: DULOXETINE
     Dosage: 30 MG, 1X/DAY
     Route: 048
     Dates: start: 20190511, end: 201905
  2. DULOXETINE (PRASCO) [Concomitant]
     Dosage: 60 MG, 1X/DAY
     Route: 048
     Dates: start: 201905

REACTIONS (3)
  - Drug ineffective [Recovered/Resolved]
  - Decreased activity [Recovering/Resolving]
  - Depression [Recovering/Resolving]

NARRATIVE: CASE EVENT DATE: 201905
